FAERS Safety Report 15004696 (Version 1)
Quarter: 2018Q2

REPORT INFORMATION
  Report Type: Report from Study
  Country: IN (occurrence: IN)
  Receive Date: 20180613
  Receipt Date: 20180613
  Transmission Date: 20180711
  Serious: Yes (Death)
  Sender: FDA-Public Use
  Company Number: PHHY2018IN021222

PATIENT
  Age: 24 Year
  Sex: Male

DRUGS (1)
  1. TASIGNA [Suspect]
     Active Substance: NILOTINIB
     Indication: CHRONIC MYELOID LEUKAEMIA
     Dosage: 400 MG, BID
     Route: 048
     Dates: start: 201805

REACTIONS (5)
  - Ocular hyperaemia [Unknown]
  - Death [Fatal]
  - Irritability [Unknown]
  - Rash erythematous [Unknown]
  - Asthenia [Unknown]

NARRATIVE: CASE EVENT DATE: 201805
